FAERS Safety Report 6011849-6 (Version None)
Quarter: 2008Q4

REPORT INFORMATION
  Report Type: 
  Country: None (occurrence: None)
  Receive Date: 20081218
  Receipt Date: 20081216
  Transmission Date: 20090506
  Serious: Yes (Death, Hospitalization)
  Sender: FDA-Public Use
  Company Number: US-SANOFI-SYNTHELABO-F01200500438

PATIENT
  Sex: Male

DRUGS (10)
  1. BEVACIZUMAB [Suspect]
     Route: 042
     Dates: start: 20050209, end: 20050209
  2. LEUCOVORIN CALCIUM [Suspect]
     Route: 042
     Dates: start: 20050209, end: 20050210
  3. FLUOROURACIL [Suspect]
     Dosage: 588 MG BOLUS + 980 MG CONTINUOUS INFUSION, Q2W
     Route: 042
     Dates: start: 20050209, end: 20050210
  4. VERAPAMIL [Concomitant]
     Dosage: UNK
     Route: 065
  5. TOPROL-XL [Concomitant]
     Dosage: UNK
     Route: 065
  6. ALDOMET [Concomitant]
     Dosage: UNK
     Route: 065
  7. CLONIDINE [Concomitant]
     Dosage: UNK
     Route: 065
  8. OXALIPLATIN [Suspect]
     Indication: COLORECTAL CANCER METASTATIC
     Route: 042
     Dates: start: 20050209, end: 20050209
  9. COUMADIN [Concomitant]
     Dosage: UNK
     Route: 065
  10. ERLOTINIB [Suspect]
     Route: 048
     Dates: start: 20050110, end: 20050222

REACTIONS (3)
  - CATHETER RELATED INFECTION [None]
  - DEATH [None]
  - RENAL FAILURE [None]
